FAERS Safety Report 6300581-7 (Version None)
Quarter: 2009Q3

REPORT INFORMATION
  Report Type: 
  Country: None (occurrence: None)
  Receive Date: 20090806
  Receipt Date: 20090501
  Transmission Date: 20100115
  Serious: No
  Sender: FDA-Public Use
  Company Number: US-ABBOTT-09P-163-0571378-00

PATIENT
  Age: 8 Year

DRUGS (4)
  1. DEPAKOTE ER [Suspect]
     Indication: CONVULSION
  2. DEPAKOTE ER [Suspect]
  3. DEPAKOTE ER [Suspect]
  4. BANZEL [Suspect]
     Indication: CONVULSION

REACTIONS (1)
  - CONVULSION [None]
